FAERS Safety Report 24956721 (Version 2)
Quarter: 2025Q2

REPORT INFORMATION
  Report Type: Report from Study
  Country: CA (occurrence: CA)
  Receive Date: 20250211
  Receipt Date: 20250507
  Transmission Date: 20250716
  Serious: Yes (Death, Hospitalization)
  Sender: EISAI
  Company Number: CA-Eisai-EC-2025-183918

PATIENT
  Age: 74 Year
  Sex: Male

DRUGS (1)
  1. LENVIMA [Suspect]
     Active Substance: LENVATINIB
     Indication: Hepatocellular carcinoma
     Dates: start: 20250131, end: 20250204

REACTIONS (2)
  - Death [Fatal]
  - Internal haemorrhage [Unknown]

NARRATIVE: CASE EVENT DATE: 20250101
